FAERS Safety Report 7962552-4 (Version None)
Quarter: 2011Q4

REPORT INFORMATION
  Report Type: 
  Country: None (occurrence: None)
  Receive Date: 20111207
  Receipt Date: 20111130
  Transmission Date: 20120403
  Serious: Yes (Other)
  Sender: FDA-Public Use
  Company Number: CZ-GLAXOSMITHKLINE-B0767528A

PATIENT
  Sex: Female

DRUGS (2)
  1. HYCAMTIN [Suspect]
     Indication: LUNG NEOPLASM MALIGNANT
     Route: 042
     Dates: start: 20100101
  2. HYCAMTIN [Suspect]
     Route: 048
     Dates: start: 20100101

REACTIONS (5)
  - ANAEMIA [None]
  - EPISTAXIS [None]
  - HAEMATOTOXICITY [None]
  - NEUTROPENIA [None]
  - THROMBOCYTOPENIA [None]
